FAERS Safety Report 8285598-8 (Version None)
Quarter: 2012Q2

REPORT INFORMATION
  Report Type: 
  Country: None (occurrence: None)
  Receive Date: 20120413
  Receipt Date: 20110823
  Transmission Date: 20120825
  Serious: No
  Sender: FDA-Public Use
  Company Number: US-ASTRAZENECA-2010SE41231

PATIENT
  Age: 60 Year
  Sex: Female

DRUGS (3)
  1. SYMBICORT [Suspect]
     Dosage: 160/ 4.5 MCG
     Route: 055
  2. NEXIUM [Suspect]
     Route: 048
  3. CRESTOR [Suspect]
     Route: 048

REACTIONS (7)
  - MALAISE [None]
  - ABDOMINAL PAIN UPPER [None]
  - NASOPHARYNGITIS [None]
  - PYREXIA [None]
  - GASTROOESOPHAGEAL REFLUX DISEASE [None]
  - DIARRHOEA [None]
  - DRUG DOSE OMISSION [None]
